FAERS Safety Report 13042028 (Version 1)
Quarter: 2016Q4

REPORT INFORMATION
  Report Type: Report from Study
  Country: CA (occurrence: CA)
  Receive Date: 20161219
  Receipt Date: 20161219
  Transmission Date: 20170207
  Serious: Yes (Hospitalization)
  Sender: FDA-Public Use
  Company Number: CA-HLSUS-2016-CA-000748

PATIENT
  Sex: Male

DRUGS (2)
  1. RIVOTRIL [Concomitant]
     Active Substance: CLONAZEPAM
     Dosage: 2.5 MG BED TIME+2.5 MG IF REQ
  2. CLOZARIL [Suspect]
     Active Substance: CLOZAPINE
     Dosage: 700 MG AT BED TIME
     Route: 048
     Dates: start: 20130219

REACTIONS (3)
  - Disinhibition [Not Recovered/Not Resolved]
  - Insomnia [Recovered/Resolved]
  - Psychotic disorder [Not Recovered/Not Resolved]
